FAERS Safety Report 9640029 (Version 4)
Quarter: 2014Q1

REPORT INFORMATION
  Report Type: Report from Study
  Country: RU (occurrence: RU)
  Receive Date: 20131023
  Receipt Date: 20140217
  Transmission Date: 20141002
  Serious: Yes (Hospitalization)
  Sender: FDA-Public Use
  Company Number: PHHO2013RU012416

PATIENT
  Age: 5 Year
  Sex: Male
  Weight: 21.8 kg

DRUGS (6)
  1. ACZ885 [Suspect]
     Indication: JUVENILE IDIOPATHIC ARTHRITIS
     Dosage: 87.2 MG, UNK
     Route: 058
     Dates: start: 20121215
  2. AMIKACIN [Concomitant]
  3. BIFIFORM [Concomitant]
  4. INTRATECT [Concomitant]
     Route: 042
  5. KREON [Concomitant]
  6. DUPHALAC [Concomitant]
     Dosage: 5 ML, QD (PER OS)
     Dates: start: 20130927, end: 20131010

REACTIONS (1)
  - Gastroenteritis [Recovered/Resolved]
